FAERS Safety Report 16355685 (Version 1)
Quarter: 2019Q2

REPORT INFORMATION
  Report Type: Spontaneous
  Country: US (occurrence: US)
  Receive Date: 20190525
  Receipt Date: 20190525
  Transmission Date: 20190711
  Serious: Yes (Other)
  Sender: FDA-Public Use
  Company Number: US-TEVA-2019-US-1052835

PATIENT
  Age: 75 Year
  Sex: Female

DRUGS (2)
  1. PROGESTIN [Concomitant]
     Active Substance: PROGESTERONE
     Route: 065
  2. ESTRADIOL. [Suspect]
     Active Substance: ESTRADIOL
     Indication: MENOPAUSE
     Route: 065

REACTIONS (2)
  - Conjunctival haemorrhage [Unknown]
  - Hyperhidrosis [Unknown]
